FAERS Safety Report 8934072 (Version 1)
Quarter: 2012Q4

REPORT INFORMATION
  Report Type: 
  Country: US (occurrence: US)
  Receive Date: 20121129
  Receipt Date: 20121129
  Transmission Date: 20130627
  Serious: No
  Sender: FDA-Public Use
  Company Number: US-GLAXOSMITHKLINE-A0947569A

PATIENT
  Age: 33 Year
  Sex: Male

DRUGS (2)
  1. WELLBUTRIN SR [Suspect]
     Indication: DEPRESSION
     Dosage: 200MG Twice per day
     Route: 048
     Dates: start: 201102
  2. KLONOPIN [Concomitant]

REACTIONS (3)
  - Nausea [Recovering/Resolving]
  - Vomiting [Unknown]
  - Contusion [Unknown]
